FAERS Safety Report 24996581 (Version 1)
Quarter: 2025Q1

REPORT INFORMATION
  Report Type: Spontaneous
  Country: FR (occurrence: FR)
  Receive Date: 20250221
  Receipt Date: 20250221
  Transmission Date: 20250408
  Serious: Yes (Life-Threatening, Other)
  Sender: MYLAN
  Company Number: None

PATIENT
  Age: 32 Year
  Sex: Female
  Weight: 74 kg

DRUGS (10)
  1. TRAMADOL [Suspect]
     Active Substance: TRAMADOL
     Indication: Pain
     Dosage: 400 MILLIGRAM, QD (200MG LI (IMMEDIATE RELEASE) AS NEEDED)
     Route: 048
     Dates: start: 20241007, end: 20241201
  2. TRAMADOL [Suspect]
     Active Substance: TRAMADOL
     Dosage: 200 MILLIGRAM, QD (200MG LP (PROLONGED RELEASE) AS NEEDED)
     Route: 048
     Dates: start: 20241202
  3. RIMIFON [Suspect]
     Active Substance: ISONIAZID
     Indication: Latent tuberculosis
     Dosage: 300 MILLIGRAM, QD
     Route: 048
     Dates: start: 20240913, end: 202501
  4. ARAVA [Suspect]
     Active Substance: LEFLUNOMIDE
     Indication: Sjogren^s syndrome
     Dosage: 20 MILLIGRAM, QD
     Route: 048
     Dates: start: 20240926, end: 20250127
  5. TOCILIZUMAB [Suspect]
     Active Substance: TOCILIZUMAB
     Indication: Sjogren^s syndrome
     Route: 042
     Dates: start: 20241007, end: 20241007
  6. TOCILIZUMAB [Suspect]
     Active Substance: TOCILIZUMAB
     Route: 042
     Dates: start: 20241104, end: 20241104
  7. TOCILIZUMAB [Suspect]
     Active Substance: TOCILIZUMAB
     Route: 042
     Dates: start: 20241202, end: 20241202
  8. TOCILIZUMAB [Suspect]
     Active Substance: TOCILIZUMAB
     Route: 042
     Dates: start: 20250127, end: 20250127
  9. PREDNISONE [Concomitant]
     Active Substance: PREDNISONE
     Indication: Sjogren^s syndrome
     Dosage: 1 DOSAGE FORM, QD
     Route: 048
     Dates: start: 202303, end: 20240904
  10. PREDNISONE [Concomitant]
     Active Substance: PREDNISONE
     Dosage: 5 MILLIGRAM, QD
     Route: 048
     Dates: start: 20240905

REACTIONS (1)
  - Agranulocytosis [Recovering/Resolving]

NARRATIVE: CASE EVENT DATE: 20250124
